FAERS Safety Report 8153855-1 (Version None)
Quarter: 2012Q1

REPORT INFORMATION
  Report Type: 
  Country: None (occurrence: None)
  Receive Date: 20120221
  Receipt Date: 20120208
  Transmission Date: 20120608
  Serious: Yes (Other)
  Sender: FDA-Public Use
  Company Number: JP-ELI_LILLY_AND_COMPANY-JP201111009114

PATIENT
  Age: 80 Year
  Sex: Female

DRUGS (1)
  1. FORTEO [Suspect]
     Route: 058

REACTIONS (5)
  - PYREXIA [None]
  - BLOOD PRESSURE DECREASED [None]
  - CHEST PAIN [None]
  - LUMBAR VERTEBRAL FRACTURE [None]
  - LOSS OF CONSCIOUSNESS [None]
